FAERS Safety Report 6218492-4 (Version None)
Quarter: 2009Q2

REPORT INFORMATION
  Report Type: 
  Country: None (occurrence: None)
  Receive Date: 20090608
  Receipt Date: 20090602
  Transmission Date: 20091009
  Serious: Yes (Other)
  Sender: FDA-Public Use
  Company Number: B0577594A

PATIENT
  Sex: Male

DRUGS (4)
  1. ZOVIRAX [Suspect]
     Dosage: 1G THREE TIMES PER DAY
     Route: 042
     Dates: start: 20090508, end: 20090511
  2. INFLAMAC [Suspect]
     Indication: HEADACHE
     Dosage: 150MG PER DAY
     Route: 048
     Dates: start: 20090508, end: 20090511
  3. ZURCAL [Suspect]
     Indication: NAUSEA
     Dosage: 20MG PER DAY
     Route: 048
     Dates: start: 20090508, end: 20090511
  4. PRIMPERAN [Concomitant]
     Indication: NAUSEA
     Route: 048
     Dates: start: 20090508, end: 20090511

REACTIONS (2)
  - BLOOD CREATININE INCREASED [None]
  - RENAL FAILURE [None]
